FAERS Safety Report 6518971-6 (Version None)
Quarter: 2009Q4

REPORT INFORMATION
  Report Type: 
  Country: None (occurrence: None)
  Receive Date: 20091228
  Receipt Date: 20091216
  Transmission Date: 20100525
  Serious: Yes (Life-Threatening, Hospitalization)
  Sender: FDA-Public Use
  Company Number: ES-ROCHE-675463

PATIENT
  Age: 44 Year
  Sex: Male

DRUGS (12)
  1. CELLCEPT [Suspect]
     Route: 048
     Dates: start: 20030211, end: 20080617
  2. ALDARA [Suspect]
     Indication: DRUG USE FOR UNKNOWN INDICATION
     Route: 061
     Dates: start: 20080401, end: 20080602
  3. RAPAMUNE [Suspect]
     Route: 048
     Dates: start: 20050101
  4. ACOVIL [Concomitant]
     Route: 048
     Dates: start: 20060101, end: 20080601
  5. ADIRO [Concomitant]
     Indication: CARDIOVASCULAR EVENT PROPHYLAXIS
     Route: 048
     Dates: start: 20021111
  6. APOCARD [Concomitant]
     Dosage: FREQUENCY REPORTED AS TWICE
     Route: 048
     Dates: start: 20050429
  7. NORVASC [Concomitant]
     Route: 048
     Dates: start: 20000101
  8. PREDNISONA ALONGA [Concomitant]
     Route: 048
     Dates: start: 19871118
  9. ZANTAC [Concomitant]
     Indication: GASTRITIS PROPHYLAXIS
     Route: 048
     Dates: start: 20020711
  10. ATORVASTATIN CALCIUM [Concomitant]
     Dosage: DRUG NAME REPORTED AS ZANTOR (ATORVASTATINE)
     Route: 048
     Dates: start: 20060101
  11. CLEBORIL [Concomitant]
  12. ORFIDAL [Concomitant]

REACTIONS (8)
  - ANURIA [None]
  - ASTHENIA [None]
  - BACK PAIN [None]
  - MALAISE [None]
  - PYREXIA [None]
  - RENAL FAILURE ACUTE [None]
  - RENAL TUBULAR NECROSIS [None]
  - THROAT IRRITATION [None]
